FAERS Safety Report 5826591-1 (Version None)
Quarter: 2008Q3

REPORT INFORMATION
  Report Type: 
  Country: None (occurrence: None)
  Receive Date: 20080728
  Receipt Date: 20080728
  Transmission Date: 20090109
  Serious: Yes (Other)
  Sender: FDA-Public Use
  Company Number: None

PATIENT
  Age: 57 Year
  Sex: Female
  Weight: 50.8029 kg

DRUGS (2)
  1. FOSAMAX [Suspect]
     Indication: OSTEOPENIA
     Dosage: ORAL SMALL TABLET- WEEKLY PO
     Route: 048
     Dates: start: 20040201, end: 20060815
  2. FOSAMAX [Suspect]
     Indication: OSTEOPOROSIS
     Dosage: ORAL SMALL TABLET- WEEKLY PO
     Route: 048
     Dates: start: 20040201, end: 20060815

REACTIONS (8)
  - CHOKING [None]
  - DYSPHAGIA [None]
  - GASTROOESOPHAGEAL REFLUX DISEASE [None]
  - JAW DISORDER [None]
  - OSTEOMYELITIS [None]
  - PHARYNGOESOPHAGEAL DIVERTICULUM [None]
  - PROCEDURAL SITE REACTION [None]
  - TOOTH LOSS [None]
